FAERS Safety Report 23791830 (Version 2)
Quarter: 2024Q3

REPORT INFORMATION
  Report Type: Spontaneous
  Country: JP (occurrence: JP)
  Receive Date: 20240429
  Receipt Date: 20240705
  Transmission Date: 20241017
  Serious: Yes (Hospitalization, Disabling, Other)
  Sender: PFIZER
  Company Number: JP-PFIZER INC-PV202400054608

PATIENT
  Age: 86 Year
  Sex: Male

DRUGS (1)
  1. VYNDAQEL [Suspect]
     Active Substance: TAFAMIDIS MEGLUMINE
     Dosage: UNK

REACTIONS (1)
  - Cerebral infarction [Unknown]

NARRATIVE: CASE EVENT DATE: 20240423
